FAERS Safety Report 9678256 (Version 1)
Quarter: 2013Q4

REPORT INFORMATION
  Report Type: Spontaneous
  Country: US (occurrence: None)
  Receive Date: 20131106
  Receipt Date: 20131106
  Transmission Date: 20140711
  Serious: Yes (Other)
  Sender: FDA-Public Use
  Company Number: 1980414

PATIENT
  Age: 53 Year
  Sex: Female
  Weight: 87.3 kg

DRUGS (1)
  1. DOCETAXEL [Suspect]
     Indication: BREAST CANCER
     Route: 041
     Dates: start: 20130924, end: 20131021

REACTIONS (4)
  - Dizziness [None]
  - Flushing [None]
  - Erythema [None]
  - Dyspnoea [None]
